FAERS Safety Report 8591319-1 (Version None)
Quarter: 2012Q3

REPORT INFORMATION
  Report Type: 
  Country: None (occurrence: None)
  Receive Date: 20120731
  Receipt Date: 20120717
  Transmission Date: 20120928
  Serious: Yes (Hospitalization)
  Sender: FDA-Public Use
  Company Number: IMP_05941_2012

PATIENT
  Age: 64 Year
  Sex: Male

DRUGS (3)
  1. NIFEDIPINE [Concomitant]
  2. CHLOROQUINE PHOSPHATE [Suspect]
     Indication: MALARIA PROPHYLAXIS
     Dosage: (7.5 G, (TOTAL DOSE 7.5 G, UNKNOWN FREQUENCY) ORAL), (1.5 MG, (TOTAL DOSE 1.5 G, UNKONWN FREQUENCY O
     Route: 048
     Dates: end: 20061201
  3. CHLOROQUINE PHOSPHATE [Suspect]
     Indication: MALARIA PROPHYLAXIS
     Dosage: (7.5 G, (TOTAL DOSE 7.5 G, UNKNOWN FREQUENCY) ORAL), (1.5 MG, (TOTAL DOSE 1.5 G, UNKONWN FREQUENCY O
     Route: 048
     Dates: start: 20061201

REACTIONS (5)
  - MITRAL VALVE INCOMPETENCE [None]
  - CARDIOMYOPATHY [None]
  - CARDIAC FAILURE [None]
  - IRON DEFICIENCY ANAEMIA [None]
  - TRICUSPID VALVE INCOMPETENCE [None]
